FAERS Safety Report 8400111-X (Version None)
Quarter: 2012Q2

REPORT INFORMATION
  Report Type: 
  Country: None (occurrence: None)
  Receive Date: 20120531
  Receipt Date: 20120525
  Transmission Date: 20120825
  Serious: Yes (Hospitalization, Other)
  Sender: FDA-Public Use
  Company Number: JP-PFIZER INC-2012110105

PATIENT
  Age: 60 Year
  Sex: Female

DRUGS (1)
  1. LYRICA [Suspect]
     Dosage: 50 MG/DAY
     Route: 048
     Dates: start: 20120425, end: 20120502

REACTIONS (2)
  - HEPATIC FUNCTION ABNORMAL [None]
  - URINARY TRACT INFECTION [None]
